FAERS Safety Report 9402013 (Version 1)
Quarter: 2013Q3

REPORT INFORMATION
  Report Type: Spontaneous
  Country: US (occurrence: US)
  Receive Date: 20130716
  Receipt Date: 20130716
  Transmission Date: 20140515
  Serious: Yes (Other)
  Sender: FDA-Public Use
  Company Number: PHHY2013US072667

PATIENT
  Age: 62 Year
  Sex: Female

DRUGS (1)
  1. OCTREOTIDE [Suspect]
     Indication: CHYLOTHORAX
     Dosage: 100 UG, TID
     Route: 058

REACTIONS (7)
  - Intestinal ischaemia [Unknown]
  - Rectal haemorrhage [Unknown]
  - Diarrhoea [Unknown]
  - Abdominal pain lower [Unknown]
  - Abdominal rigidity [Unknown]
  - Tenderness [Unknown]
  - White blood cell count decreased [Unknown]
